FAERS Safety Report 14375792 (Version 1)
Quarter: 2018Q1

REPORT INFORMATION
  Report Type: Spontaneous
  Country: US (occurrence: US)
  Receive Date: 20180110
  Receipt Date: 20180110
  Transmission Date: 20180509
  Serious: Yes (Hospitalization)
  Sender: FDA-Public Use
  Company Number: None

PATIENT
  Age: 64 Year
  Sex: Male
  Weight: 102.4 kg

DRUGS (1)
  1. REVLIMID [Suspect]
     Active Substance: LENALIDOMIDE
     Indication: PLASMA CELL MYELOMA
     Dosage: PATIENT WAS ON CYCLE 12?28 DAYS
     Route: 048
     Dates: start: 20170831

REACTIONS (3)
  - Bronchitis [None]
  - Neutropenia [None]
  - Body temperature increased [None]

NARRATIVE: CASE EVENT DATE: 20170831
